FAERS Safety Report 9144143 (Version 1)
Quarter: 2013Q1

REPORT INFORMATION
  Report Type: Spontaneous
  Country: IE (occurrence: IE)
  Receive Date: 20130306
  Receipt Date: 20130306
  Transmission Date: 20140127
  Serious: Yes (Hospitalization)
  Sender: FDA-Public Use
  Company Number: IE-ASTRAZENECA-2013SE13139

PATIENT
  Age: 46 Year
  Sex: Male
  Weight: 97 kg

DRUGS (4)
  1. SYMBICORT TURBOHALER [Suspect]
     Indication: ASTHMA
     Route: 055
  2. SYMBICORT TURBOHALER [Suspect]
     Indication: ASTHMA
     Dosage: 2 PUFFS, TWICE DAILY
     Route: 055
  3. AVAMYS [Suspect]
     Dosage: 27.5 MCG, TWICE DAILY IN EACH NOSTRIL
     Route: 045
  4. VENTOLIN EVOHALER [Suspect]
     Route: 065

REACTIONS (1)
  - Pancreatitis [Not Recovered/Not Resolved]
